FAERS Safety Report 8085370-8 (Version None)
Quarter: 2012Q1

REPORT INFORMATION
  Report Type: 
  Country: None (occurrence: None)
  Receive Date: 20120128
  Receipt Date: 20110505
  Transmission Date: 20120608
  Serious: No
  Sender: FDA-Public Use
  Company Number: US-ABBOTT-10P-163-0692449-00

PATIENT
  Age: 72 Year
  Sex: Female

DRUGS (11)
  1. DICYCLOMINE [Concomitant]
     Indication: ABDOMINAL PAIN
  2. AMLODIPINE [Concomitant]
     Indication: HYPERTENSION
  3. OMEPRAZOLE [Concomitant]
     Indication: ABDOMINAL DISCOMFORT
  4. FISH OIL [Concomitant]
     Indication: VITAMIN SUPPLEMENTATION
  5. HUMIRA [Suspect]
     Indication: CROHN'S DISEASE
     Dates: start: 20100709
  6. CENTRUM [Concomitant]
     Indication: VITAMIN SUPPLEMENTATION
  7. LIPITOR [Concomitant]
     Indication: BLOOD CHOLESTEROL INCREASED
  8. DARVOCET [Concomitant]
     Indication: PAIN
  9. NASONEX [Concomitant]
     Indication: PRODUCT USED FOR UNKNOWN INDICATION
  10. XANAX [Concomitant]
     Indication: ANXIETY
  11. REFRESH TEARS [Concomitant]
     Indication: DRY EYE

REACTIONS (7)
  - PYREXIA [None]
  - PAIN [None]
  - CROHN'S DISEASE [None]
  - ABDOMINAL PAIN UPPER [None]
  - NAUSEA [None]
  - RETINAL HAEMORRHAGE [None]
  - DIVERTICULUM [None]
